FAERS Safety Report 10905204 (Version 1)
Quarter: 2015Q1

REPORT INFORMATION
  Report Type: Spontaneous
  Country: US (occurrence: None)
  Receive Date: 20150309
  Receipt Date: 20150309
  Transmission Date: 20150721
  Serious: Yes (Other)
  Sender: FDA-Public Use
  Company Number: None

PATIENT
  Age: 58 Year
  Sex: Female

DRUGS (23)
  1. DEXILANT [Concomitant]
     Active Substance: DEXLANSOPRAZOLE
  2. RIZATRIPTAN [Concomitant]
     Active Substance: RIZATRIPTAN
  3. METHOCARABAMOL [Concomitant]
  4. BUTRANS [Concomitant]
     Active Substance: BUPRENORPHINE
  5. FOLIC ACID. [Concomitant]
     Active Substance: FOLIC ACID
  6. METHOTREXATE [Concomitant]
     Active Substance: METHOTREXATE
  7. ETODOLAC. [Concomitant]
     Active Substance: ETODOLAC
  8. ENBREL [Suspect]
     Active Substance: ETANERCEPT
     Indication: RHEUMATOID ARTHRITIS
     Route: 058
     Dates: start: 20140827
  9. HYDROCHLOROQUINE [Concomitant]
     Active Substance: HYDROXYCHLOROQUINE SULFATE
  10. BUTRANS [Concomitant]
     Active Substance: BUPRENORPHINE
  11. LIDOCAINE. [Concomitant]
     Active Substance: LIDOCAINE
  12. CYPROHEPTADINE. [Concomitant]
     Active Substance: CYPROHEPTADINE
  13. BUTRANS [Concomitant]
     Active Substance: BUPRENORPHINE
  14. ROPINROLE [Concomitant]
  15. OXYCODONE/ACETAMINOPHEN [Concomitant]
     Active Substance: ACETAMINOPHEN\OXYCODONE HYDROCHLORIDE
  16. LIDOCAINE. [Concomitant]
     Active Substance: LIDOCAINE
  17. BUTRANS [Concomitant]
     Active Substance: BUPRENORPHINE
  18. DULOXETINE [Concomitant]
     Active Substance: DULOXETINE
  19. METOPROLOL ER SUCCINATE [Concomitant]
     Active Substance: METOPROLOL SUCCINATE
  20. PROMETHAZINE [Concomitant]
     Active Substance: PROMETHAZINE\PROMETHAZINE HYDROCHLORIDE
  21. METHOTREXATE [Concomitant]
     Active Substance: METHOTREXATE
  22. CARISOPRODOL. [Concomitant]
     Active Substance: CARISOPRODOL
  23. CYCLOBENZAPRINE [Concomitant]
     Active Substance: CYCLOBENZAPRINE

REACTIONS (2)
  - Injection site pruritus [None]
  - Injection site swelling [None]

NARRATIVE: CASE EVENT DATE: 20150220
